APPROVED DRUG PRODUCT: CHLOROTHIAZIDE SODIUM
Active Ingredient: CHLOROTHIAZIDE SODIUM
Strength: EQ 500MG BASE/VIAL
Dosage Form/Route: INJECTABLE;INJECTION
Application: A202493 | Product #001
Applicant: RK PHARMA INC
Approved: Jun 18, 2014 | RLD: No | RS: No | Type: DISCN